FAERS Safety Report 5194390-2 (Version None)
Quarter: 2006Q4

REPORT INFORMATION
  Report Type: 
  Country: None (occurrence: None)
  Receive Date: 20061228
  Receipt Date: 20061220
  Transmission Date: 20070319
  Serious: Yes (Disabling, Other)
  Sender: FDA-Public Use
  Company Number: US-PFIZER INC-2006155291

PATIENT
  Sex: Female
  Weight: 49.9 kg

DRUGS (2)
  1. SUTENT [Suspect]
     Indication: ANAPLASTIC THYROID CANCER
     Route: 048
  2. SYNTHROID [Concomitant]

REACTIONS (2)
  - ORAL PAIN [None]
  - SWOLLEN TONGUE [None]
